FAERS Safety Report 6616037-8 (Version None)
Quarter: 2010Q1

REPORT INFORMATION
  Report Type: 
  Country: None (occurrence: None)
  Receive Date: 20100305
  Receipt Date: 20100225
  Transmission Date: 20100710
  Serious: Yes (Hospitalization)
  Sender: FDA-Public Use
  Company Number: B0637137A

PATIENT
  Age: 59 Year
  Sex: Female

DRUGS (1)
  1. ARIXTRA [Suspect]
     Indication: THROMBOSIS PROPHYLAXIS
     Route: 058
     Dates: start: 20091101, end: 20091101

REACTIONS (2)
  - INTRA-ABDOMINAL HAEMATOMA [None]
  - OFF LABEL USE [None]
